FAERS Safety Report 11571072 (Version 1)
Quarter: 2015Q3

REPORT INFORMATION
  Report Type: Spontaneous
  Country: US (occurrence: US)
  Receive Date: 20150929
  Receipt Date: 20150929
  Transmission Date: 20151125
  Serious: No
  Sender: FDA-Public Use
  Company Number: US-BAYER-2015-427547

PATIENT
  Sex: Female

DRUGS (1)
  1. MIRENA [Suspect]
     Active Substance: LEVONORGESTREL
     Dosage: 20 MCG/24HR, CONT
     Route: 015
     Dates: start: 201403, end: 20150811

REACTIONS (10)
  - Vertigo [None]
  - Diplopia [None]
  - Insomnia [None]
  - Panic attack [Not Recovered/Not Resolved]
  - Anxiety [None]
  - Malaise [None]
  - Depression [None]
  - Balance disorder [None]
  - Dizziness [None]
  - Insomnia [None]

NARRATIVE: CASE EVENT DATE: 201406
